FAERS Safety Report 4761806-2 (Version None)
Quarter: 2005Q3

REPORT INFORMATION
  Report Type: 
  Country: None (occurrence: None)
  Receive Date: 20050831
  Receipt Date: 20050608
  Transmission Date: 20060218
  Serious: No
  Sender: FDA-Public Use
  Company Number: PHEH2005US06523

PATIENT
  Age: 62 Year
  Sex: Female

DRUGS (2)
  1. ENABLEX [Suspect]
     Indication: HYPERTONIC BLADDER
     Dosage: 7.5 MG, QD, ORAL; SEE IMAGE
     Route: 048
     Dates: end: 20050606
  2. ENABLEX [Suspect]
     Indication: HYPERTONIC BLADDER
     Dosage: 7.5 MG, QD, ORAL; SEE IMAGE
     Route: 048
     Dates: start: 20050607

REACTIONS (2)
  - HEADACHE [None]
  - IRRITABILITY [None]
